FAERS Safety Report 6645837-3 (Version None)
Quarter: 2010Q1

REPORT INFORMATION
  Report Type: 
  Country: None (occurrence: None)
  Receive Date: 20100323
  Receipt Date: 20100317
  Transmission Date: 20100710
  Serious: Yes (Hospitalization, Other)
  Sender: FDA-Public Use
  Company Number: US-GENZYME-CERZ-1001165

PATIENT
  Sex: Male

DRUGS (1)
  1. CEREZYME [Suspect]
     Indication: GAUCHER'S DISEASE
     Dosage: 60 U/KG, QW
     Route: 042
     Dates: start: 19990327

REACTIONS (8)
  - ANAEMIA [None]
  - FATIGUE [None]
  - GAUCHER'S DISEASE [None]
  - INFLUENZA [None]
  - LUNG INFILTRATION [None]
  - LYMPH NODE CALCIFICATION [None]
  - PNEUMONIA [None]
  - RED BLOOD CELL ABNORMALITY [None]
